FAERS Safety Report 10232621 (Version 3)
Quarter: 2014Q3

REPORT INFORMATION
  Report Type: Spontaneous
  Country: US (occurrence: US)
  Receive Date: 20140612
  Receipt Date: 20140825
  Transmission Date: 20150326
  Serious: Yes (Disabling, Other)
  Sender: FDA-Public Use
  Company Number: US-BAYER-2014-086996

PATIENT
  Age: 24 Year
  Sex: Female
  Weight: 101.13 kg

DRUGS (1)
  1. MIRENA [Suspect]
     Active Substance: LEVONORGESTREL
     Indication: CONTRACEPTION
     Dosage: 20 MCG/24HR, CONT
     Route: 015
     Dates: start: 200906, end: 20140124

REACTIONS (33)
  - Infection [None]
  - Back pain [None]
  - Procedural pain [None]
  - Abdominal distension [None]
  - Depressed mood [None]
  - Embedded device [None]
  - Abdominal pain [None]
  - Menstruation irregular [None]
  - Incontinence [None]
  - Dizziness [None]
  - Emotional distress [None]
  - Nausea [None]
  - Mood swings [None]
  - Frustration [None]
  - Weight increased [None]
  - Alopecia areata [None]
  - Fear [None]
  - Activities of daily living impaired [None]
  - Vulvovaginal discomfort [None]
  - Anhedonia [None]
  - Breast tenderness [None]
  - Anxiety [None]
  - Post procedural haemorrhage [None]
  - Headache [None]
  - Device use error [None]
  - Vulvovaginal swelling [None]
  - Device difficult to use [None]
  - Procedural haemorrhage [None]
  - Abdominal discomfort [None]
  - Deformity [None]
  - Depression [None]
  - Device issue [None]
  - Abdominal pain lower [None]

NARRATIVE: CASE EVENT DATE: 2009
